FAERS Safety Report 8773997 (Version 1)
Quarter: 2012Q4

REPORT INFORMATION
  Report Type: 
  Country: GB (occurrence: GB)
  Receive Date: 20120907
  Receipt Date: 20120907
  Transmission Date: 20130627
  Serious: Yes (Disabling, Other)
  Sender: FDA-Public Use
  Company Number: GB-WATSON-2012-15616

PATIENT
  Age: 44 Year
  Sex: Male
  Weight: 73.02 kg

DRUGS (3)
  1. CIPROFLOXACIN HYDROCHLORIDE [Suspect]
     Indication: EPIDIDYMITIS
     Dosage: 500 mg milligram(s) 1 Days
     Route: 048
     Dates: start: 20120802, end: 20120808
  2. LANSOPRAZOLE [Concomitant]
     Indication: PRODUCT USED FOR UNKNOWN INDICATION
     Dosage: UNK
     Route: 065
  3. FLUOXETINE [Concomitant]
     Indication: PRODUCT USED FOR UNKNOWN INDICATION
     Dosage: UNK
     Route: 065

REACTIONS (11)
  - Headache [Not Recovered/Not Resolved]
  - Muscle spasms [Recovering/Resolving]
  - Tendon pain [Recovering/Resolving]
  - Malaise [Unknown]
  - Agitation [Unknown]
  - Anger [Unknown]
  - Depression [Unknown]
  - Violence-related symptom [Unknown]
  - Insomnia [Unknown]
  - Malaise [None]
  - Impaired work ability [None]
